FAERS Safety Report 12891473 (Version 1)
Quarter: 2016Q4

REPORT INFORMATION
  Report Type: Spontaneous
  Country: PR (occurrence: US)
  Receive Date: 20161028
  Receipt Date: 20161028
  Transmission Date: 20170207
  Serious: Yes (Other)
  Sender: FDA-Public Use
  Company Number: PR-JNJCP-30000358467

PATIENT
  Sex: Female
  Weight: 75 kg

DRUGS (2)
  1. NEUTROGENA OIL FREE ACNE STRESS CONTROL [Suspect]
     Active Substance: SALICYLIC ACID
     Indication: REMOVAL OF INERT MATTER FROM SKIN OR SUBCUTANEOUS TISSUE
     Dosage: LESS THAN A DIME SIZED AMOUNT, ONCE
     Route: 061
     Dates: start: 20161006, end: 20161006
  2. NEUTROGENA OIL FREE ACNE MOISTURIZER PINK GRAPEFRUIT [Suspect]
     Active Substance: SALICYLIC ACID
     Indication: DRY SKIN PROPHYLAXIS
     Dosage: ONE FORTH A DIME SIZE AMOUNT, ONCE
     Route: 061
     Dates: start: 20161006, end: 20161006

REACTIONS (1)
  - Hypersensitivity [Recovering/Resolving]

NARRATIVE: CASE EVENT DATE: 20161007
